FAERS Safety Report 23939189 (Version 1)
Quarter: 2024Q2

REPORT INFORMATION
  Report Type: Spontaneous
  Country: US (occurrence: US)
  Receive Date: 20240604
  Receipt Date: 20240604
  Transmission Date: 20240715
  Serious: No
  Sender: FDA-Public Use
  Company Number: US-ABBVIE-5785412

PATIENT
  Sex: Female
  Weight: 68 kg

DRUGS (3)
  1. ARMOUR THYROID [Suspect]
     Active Substance: THYROID, PORCINE
     Indication: Hypothyroidism
     Dosage: STRENGTH: 60 MG
     Route: 048
     Dates: start: 2014, end: 2014
  2. ARMOUR THYROID [Suspect]
     Active Substance: THYROID, PORCINE
     Indication: Hypothyroidism
     Dosage: STRENGTH: 60 MG
     Route: 048
     Dates: start: 202404, end: 20140504
  3. ARMOUR THYROID [Suspect]
     Active Substance: THYROID, PORCINE
     Indication: Hypothyroidism
     Dosage: STRENGTH: 60 MG
     Route: 048
     Dates: start: 2017, end: 202403

REACTIONS (7)
  - Anxiety [Recovered/Resolved]
  - Extrasystoles [Unknown]
  - Panic attack [Recovered/Resolved]
  - Tachycardia [Recovering/Resolving]
  - Palpitations [Recovering/Resolving]
  - Hypertension [Recovered/Resolved]
  - Cardiac murmur [Not Recovered/Not Resolved]

NARRATIVE: CASE EVENT DATE: 20170101
